FAERS Safety Report 5664833-6 (Version None)
Quarter: 2008Q1

REPORT INFORMATION
  Report Type: 
  Country: None (occurrence: None)
  Receive Date: 20080314
  Receipt Date: 20071214
  Transmission Date: 20080703
  Serious: Yes (Other)
  Sender: FDA-Public Use
  Company Number: JP-PFIZER INC-2008020718

PATIENT
  Age: 62 Year
  Sex: Male

DRUGS (1)
  1. MIGLITOL TABLET [Suspect]
     Dosage: DAILY DOSE:75MG
     Route: 048

REACTIONS (2)
  - ABDOMINAL DISTENSION [None]
  - HEPATIC FUNCTION ABNORMAL [None]
